FAERS Safety Report 21563545 (Version 11)
Quarter: 2024Q2

REPORT INFORMATION
  Report Type: Report from Study
  Country: US (occurrence: US)
  Receive Date: 20221108
  Receipt Date: 20240527
  Transmission Date: 20240716
  Serious: Yes (Hospitalization, Other)
  Sender: FDA-Public Use
  Company Number: US-ABBVIE-4189349

PATIENT
  Sex: Female
  Weight: 90.718 kg

DRUGS (5)
  1. IMBRUVICA [Suspect]
     Active Substance: IBRUTINIB
     Indication: Waldenstrom^s macroglobulinaemia
     Dosage: REDUCED DOSE
     Route: 048
     Dates: start: 202311
  2. IMBRUVICA [Suspect]
     Active Substance: IBRUTINIB
     Indication: Waldenstrom^s macroglobulinaemia
     Dosage: FORM STRENGTH: 280 MG
     Route: 048
     Dates: start: 20210825, end: 20221201
  3. IMBRUVICA [Suspect]
     Active Substance: IBRUTINIB
     Indication: Waldenstrom^s macroglobulinaemia
     Dosage: FORM STRENGTH: 140 MG
     Route: 048
     Dates: start: 20210828
  4. IMBRUVICA [Suspect]
     Active Substance: IBRUTINIB
     Indication: Waldenstrom^s macroglobulinaemia
     Dosage: STRENGTH: 140 MILLIGRAM?REDUCED DOSE
     Route: 048
     Dates: start: 202211, end: 20231120
  5. IMBRUVICA [Suspect]
     Active Substance: IBRUTINIB
     Indication: Waldenstrom^s macroglobulinaemia
     Route: 048
     Dates: start: 202108, end: 202108

REACTIONS (15)
  - Cellulitis [Unknown]
  - Influenza [Recovered/Resolved]
  - Squamous cell carcinoma of skin [Not Recovered/Not Resolved]
  - Pruritus [Unknown]
  - Malaise [Unknown]
  - Rash papular [Unknown]
  - Skin laceration [Unknown]
  - Pruritus [Recovering/Resolving]
  - Skin ulcer [Unknown]
  - Malignant melanoma [Unknown]
  - Skin infection [Unknown]
  - Pericardial effusion [Unknown]
  - Cardiac failure congestive [Recovering/Resolving]
  - Laboratory test abnormal [Unknown]
  - Skin atrophy [Unknown]

NARRATIVE: CASE EVENT DATE: 20220101
